FAERS Safety Report 17680789 (Version 1)
Quarter: 2020Q2

REPORT INFORMATION
  Report Type: Spontaneous
  Country: US (occurrence: US)
  Receive Date: 20200417
  Receipt Date: 20200417
  Transmission Date: 20200714
  Serious: No
  Sender: FDA-Public Use
  Company Number: US-EMD SERONO-9156669

PATIENT
  Age: 16 Year
  Sex: Female

DRUGS (1)
  1. MAVENCLAD [Suspect]
     Active Substance: CLADRIBINE
     Indication: MULTIPLE SCLEROSIS
     Dosage: FIRST CYCLE THERAPY.
     Route: 048
     Dates: start: 20200320

REACTIONS (2)
  - Rash [Unknown]
  - Off label use [Unknown]

NARRATIVE: CASE EVENT DATE: 20200320
